FAERS Safety Report 4305504-8 (Version None)
Quarter: 2004Q1

REPORT INFORMATION
  Report Type: 
  Country: None (occurrence: None)
  Receive Date: 20040226
  Receipt Date: 20031106
  Transmission Date: 20041129
  Serious: No
  Sender: FDA-Public Use
  Company Number: US-BRISTOL-MYERS SQUIBB COMPANY-12429767

PATIENT
  Age: 49 Year
  Sex: Female
  Weight: 73 kg

DRUGS (4)
  1. ABILIFY [Suspect]
     Indication: SCHIZOAFFECTIVE DISORDER
     Route: 048
     Dates: start: 20031024
  2. ZYPREXA [Concomitant]
  3. PERI-COLACE [Concomitant]
  4. PAXIL CR [Concomitant]

REACTIONS (4)
  - ASTHENIA [None]
  - CONSTIPATION [None]
  - HYPOGLYCAEMIA [None]
  - INSOMNIA [None]
